FAERS Safety Report 6201400-X (Version None)
Quarter: 2009Q2

REPORT INFORMATION
  Report Type: 
  Country: None (occurrence: None)
  Receive Date: 20090526
  Receipt Date: 20090521
  Transmission Date: 20091009
  Serious: Yes (Death, Other)
  Sender: FDA-Public Use
  Company Number: PHHY2008MX22072

PATIENT
  Age: 81 Year
  Sex: Male

DRUGS (1)
  1. STALEVO 100 [Suspect]
     Indication: PARKINSON'S DISEASE
     Dosage: 3 TABLETS (150/37.5/200 MG) PER DAY
     Route: 048
     Dates: start: 20060101, end: 20080824

REACTIONS (3)
  - BLOOD URINE PRESENT [None]
  - INFARCTION [None]
  - URINARY TRACT INFECTION [None]
